FAERS Safety Report 21744415 (Version 1)
Quarter: 2022Q4

REPORT INFORMATION
  Report Type: Spontaneous
  Country: US (occurrence: US)
  Receive Date: 20221218
  Receipt Date: 20221218
  Transmission Date: 20230113
  Serious: No
  Sender: FDA-Public Use
  Company Number: US-SA-SAC20221215001719

PATIENT
  Sex: Female

DRUGS (1)
  1. SARCLISA [Suspect]
     Active Substance: ISATUXIMAB-IRFC
     Indication: Plasma cell myeloma
     Dosage: 670 MG;DAYS 1 AND IS OF A 28 DAY CYCLE
     Dates: start: 201911

REACTIONS (2)
  - Fluid retention [Unknown]
  - Gait disturbance [Unknown]
